FAERS Safety Report 7323596-9 (Version None)
Quarter: 2011Q1

REPORT INFORMATION
  Report Type: 
  Country: None (occurrence: None)
  Receive Date: 20110301
  Receipt Date: 20110225
  Transmission Date: 20110831
  Serious: Yes (Other)
  Sender: FDA-Public Use
  Company Number: US-PFIZER INC-2010076680

PATIENT
  Sex: Female
  Weight: 63.492 kg

DRUGS (9)
  1. ACTONEL [Concomitant]
     Dosage: 35 MG, 1X/DAY
  2. ACETYLSALICYLIC ACID [Concomitant]
     Dosage: UNK
  3. TOVIAZ [Suspect]
     Indication: HYPERTONIC BLADDER
     Dosage: 4 MG, 1X/DAY
     Route: 048
     Dates: start: 20100301
  4. CARVEDILOL [Concomitant]
     Indication: HYPERTENSION
     Dosage: UNK
  5. METFORMIN HYDROCHLORIDE/SITAGLIPTIN [Concomitant]
     Dosage: UNK
  6. TOVIAZ [Suspect]
     Dosage: 8 MG, 1X/DAY
  7. ZETIA [Concomitant]
     Dosage: UNK
  8. LEVOXYL [Concomitant]
     Dosage: UNK
  9. INSULIN [Concomitant]
     Dosage: 40 MG, UNK

REACTIONS (5)
  - HEAD INJURY [None]
  - SYNCOPE [None]
  - VISION BLURRED [None]
  - DIZZINESS [None]
  - CONCUSSION [None]
